FAERS Safety Report 4303669-5 (Version None)
Quarter: 2004Q1

REPORT INFORMATION
  Report Type: 
  Country: None (occurrence: None)
  Receive Date: 20040219
  Receipt Date: 20040211
  Transmission Date: 20041129
  Serious: Yes (Hospitalization)
  Sender: FDA-Public Use
  Company Number: E2004-00426

PATIENT
  Age: 30 Year
  Sex: Female

DRUGS (2)
  1. IMMUNOGLOBULIN HUMAN ANTIRABIES [Suspect]
     Indication: IMMUNISATION
     Dosage: I.M.
     Route: 030
     Dates: start: 20031112
  2. TOLLWUT IMPSTOFF (HDC) INACKTIVIERT (HDC) VACCINE - F), AVENTIS PASTEU [Suspect]
     Indication: IMMUNISATION
     Dosage: I.M., ARM
     Route: 030
     Dates: start: 20031112

REACTIONS (6)
  - CIRCULATORY COLLAPSE [None]
  - CONCUSSION [None]
  - COUGH [None]
  - LOSS OF CONSCIOUSNESS [None]
  - RETCHING [None]
  - ROAD TRAFFIC ACCIDENT [None]
